FAERS Safety Report 13844780 (Version 1)
Quarter: 2017Q3

REPORT INFORMATION
  Report Type: Spontaneous
  Country: US (occurrence: US)
  Receive Date: 20170808
  Receipt Date: 20170808
  Transmission Date: 20171127
  Serious: No
  Sender: FDA-Public Use
  Company Number: US-PFIZER INC-2017342629

PATIENT
  Sex: Female

DRUGS (6)
  1. PANTOPRAZOLE [Suspect]
     Active Substance: PANTOPRAZOLE
     Dosage: 40 MG, DAILY
  2. ZOLOFT [Suspect]
     Active Substance: SERTRALINE HYDROCHLORIDE
     Dosage: 125 MG, DAILY
  3. XELJANZ XR [Suspect]
     Active Substance: TOFACITINIB CITRATE
     Dosage: 11 MG, DAILY
  4. METOPROLOL. [Suspect]
     Active Substance: METOPROLOL
     Dosage: 50 MG, DAILY
  5. XANAX [Suspect]
     Active Substance: ALPRAZOLAM
     Dosage: 0.25 MG, AS NEEDED (AT BEDTIME)
  6. BUPRENORPHINE. [Suspect]
     Active Substance: BUPRENORPHINE
     Dosage: 75 UG, 2X/DAY

REACTIONS (16)
  - Myalgia [Unknown]
  - Joint swelling [Unknown]
  - Xerosis [Unknown]
  - Blood pressure increased [Unknown]
  - Musculoskeletal stiffness [Unknown]
  - Fatigue [Unknown]
  - Dry mouth [Unknown]
  - Asthenia [Unknown]
  - Tinnitus [Unknown]
  - Insomnia [Unknown]
  - Oropharyngeal pain [Unknown]
  - Dry eye [Unknown]
  - Dysphagia [Unknown]
  - Arthralgia [Unknown]
  - Nasal congestion [Unknown]
  - Hypoaesthesia [Unknown]
